FAERS Safety Report 7241676-3 (Version None)
Quarter: 2011Q1

REPORT INFORMATION
  Report Type: 
  Country: None (occurrence: None)
  Receive Date: 20110124
  Receipt Date: 20110113
  Transmission Date: 20110831
  Serious: Yes (Other)
  Sender: FDA-Public Use
  Company Number: PHHY2010FR87040

PATIENT
  Sex: Female

DRUGS (6)
  1. PARLODEL [Suspect]
     Indication: ACROMEGALY
     Dosage: 5 MG DAILY
  2. SANDOSTATIN [Suspect]
     Dosage: 500 MCG/1 ML, THREE INJECTIONS DAILY UNTIL ONE-WEEK PREGNANCY
  3. SANDOSTATIN [Suspect]
     Indication: ACROMEGALY
     Dosage: 500 MCG/1 ML, 2 INJECTIONS DAILY
     Dates: start: 19981001
  4. CHORIONIC GONADOTROPIN [Concomitant]
  5. SOMATULINE LA [Concomitant]
     Dosage: 120 MG ONE INJ EVERY 28 DAYS
  6. CLOMID [Concomitant]

REACTIONS (5)
  - INSULIN-LIKE GROWTH FACTOR INCREASED [None]
  - PREMATURE LABOUR [None]
  - DRUG EXPOSURE DURING PREGNANCY [None]
  - CAESAREAN SECTION [None]
  - BLOOD GROWTH HORMONE INCREASED [None]
